FAERS Safety Report 9176895 (Version 1)
Quarter: 2013Q1

REPORT INFORMATION
  Report Type: Spontaneous
  Country: GB (occurrence: GB)
  Receive Date: 20130321
  Receipt Date: 20130321
  Transmission Date: 20140127
  Serious: Yes (Hospitalization)
  Sender: FDA-Public Use
  Company Number: GB-JNJFOC-20040901000

PATIENT
  Age: 55 Year
  Sex: Female
  Weight: 62 kg

DRUGS (7)
  1. IBUPROFEN [Suspect]
     Indication: ARTHRALGIA
     Route: 048
     Dates: start: 200312, end: 200401
  2. VIREAD [Suspect]
     Indication: PRODUCT USED FOR UNKNOWN INDICATION
     Route: 048
     Dates: start: 200302, end: 200401
  3. KALETRA [Concomitant]
     Dosage: 3 BID PO
     Route: 048
     Dates: start: 200302, end: 200401
  4. ABACAVIR [Concomitant]
     Route: 048
     Dates: start: 200302, end: 200401
  5. ATENOLOL [Concomitant]
     Route: 048
  6. FLUCONAZOLE [Concomitant]
     Route: 048
     Dates: end: 200401
  7. SEPTRIN [Concomitant]
     Route: 048
     Dates: end: 200401

REACTIONS (3)
  - Metabolic acidosis [Recovering/Resolving]
  - Renal failure acute [Recovering/Resolving]
  - Renal tubular acidosis [Recovering/Resolving]
